FAERS Safety Report 23816156 (Version 1)
Quarter: 2024Q2

REPORT INFORMATION
  Report Type: Spontaneous
  Country: HR (occurrence: HR)
  Receive Date: 20240503
  Receipt Date: 20240503
  Transmission Date: 20240716
  Serious: Yes (Other)
  Sender: FDA-Public Use
  Company Number: None

PATIENT
  Age: 57 Year
  Sex: Female
  Weight: 68 kg

DRUGS (5)
  1. AJOVY [Suspect]
     Active Substance: FREMANEZUMAB-VFRM
     Indication: Migraine
     Route: 058
     Dates: start: 20231214, end: 20240212
  2. SUMATRIPTAN SUCCINATE [Concomitant]
     Active Substance: SUMATRIPTAN SUCCINATE
     Indication: Migraine
     Dosage: TIME INTERVAL: AS NECESSARY: UNKNOWN
     Route: 065
  3. IBUPROFEN [Concomitant]
     Active Substance: IBUPROFEN
     Indication: Tension headache
     Dosage: TIME INTERVAL: AS NECESSARY
     Route: 048
  4. PERINDOPRIL ARGININE [Concomitant]
     Active Substance: PERINDOPRIL ARGININE
     Indication: Hypertension
     Route: 048
     Dates: start: 202302
  5. NORMABEL [Concomitant]
     Active Substance: DIAZEPAM
     Indication: Tension headache
     Dosage: TIME INTERVAL: AS NECESSARY
     Route: 048

REACTIONS (9)
  - Arrhythmia [Recovered/Resolved]
  - Blood pressure fluctuation [Recovered/Resolved]
  - Fatigue [Recovered/Resolved]
  - Back pain [Recovered/Resolved]
  - Chest discomfort [Recovered/Resolved]
  - Arthralgia [Recovered/Resolved]
  - Hyperhidrosis [Recovered/Resolved]
  - Chest pain [Recovered/Resolved]
  - Heart rate increased [Recovered/Resolved]

NARRATIVE: CASE EVENT DATE: 20231215
